FAERS Safety Report 7403307-9 (Version None)
Quarter: 2011Q2

REPORT INFORMATION
  Report Type: 
  Country: None (occurrence: None)
  Receive Date: 20110408
  Receipt Date: 20110328
  Transmission Date: 20111010
  Serious: Yes (Death)
  Sender: FDA-Public Use
  Company Number: GB-PFIZER INC-2011069105

PATIENT
  Age: 56 Year
  Sex: Male

DRUGS (8)
  1. NEUPOGEN [Concomitant]
     Dosage: 263 UG, UNK
     Dates: start: 20110301, end: 20110313
  2. VANCOMYCIN [Concomitant]
     Dosage: 1 G, UNK
     Dates: start: 20110301, end: 20110313
  3. GEMTUZUMAB OZOGAMICIN [Suspect]
     Indication: ACUTE MYELOID LEUKAEMIA
     Dosage: CYCLE 1
     Dates: start: 20110221
  4. CYTARABINE [Suspect]
     Indication: ACUTE MYELOID LEUKAEMIA
     Dosage: CYCLE 1
     Dates: start: 20110221
  5. GENTAMICIN [Concomitant]
     Dosage: UNK
     Dates: start: 20110221
  6. ACICLOVIR [Concomitant]
     Dosage: 400 MG, UNK
     Dates: start: 20110228, end: 20110313
  7. DAUNORUBICIN HCL [Suspect]
     Indication: ACUTE MYELOID LEUKAEMIA
     Dosage: CYCLE 1
     Dates: start: 20110221
  8. TAZOCIN [Concomitant]
     Dosage: 4.5 G, UNK
     Dates: start: 20110221

REACTIONS (3)
  - ACUTE MYELOID LEUKAEMIA [None]
  - PSEUDOMONAL SEPSIS [None]
  - DISEASE PROGRESSION [None]
